FAERS Safety Report 4999208-6 (Version None)
Quarter: 2006Q2

REPORT INFORMATION
  Report Type: 
  Country: None (occurrence: None)
  Receive Date: 20060509
  Receipt Date: 20060421
  Transmission Date: 20061013
  Serious: Yes (Death)
  Sender: FDA-Public Use
  Company Number: US200511001636

PATIENT
  Age: 34 Year
  Sex: Female

DRUGS (1)
  1. ZYPREXA [Suspect]
     Dates: start: 19980701, end: 20020401

REACTIONS (3)
  - MIGRAINE [None]
  - MULTIPLE DRUG OVERDOSE ACCIDENTAL [None]
  - MYOCARDIAL INFARCTION [None]
